FAERS Safety Report 5300515-8 (Version None)
Quarter: 2007Q2

REPORT INFORMATION
  Report Type: 
  Country: None (occurrence: None)
  Receive Date: 20070418
  Receipt Date: 20070413
  Transmission Date: 20071010
  Serious: Yes (Other)
  Sender: FDA-Public Use
  Company Number: JP-BRISTOL-MYERS SQUIBB COMPANY-13746797

PATIENT
  Age: 22 Year
  Sex: Female

DRUGS (3)
  1. ETOPOSIDE [Suspect]
  2. DEXAMETHASONE [Suspect]
  3. CYCLOSPORINE [Suspect]

REACTIONS (3)
  - DISEASE PROGRESSION [None]
  - LEUKOPENIA [None]
  - NEUROTOXICITY [None]
